FAERS Safety Report 6052732-X (Version None)
Quarter: 2009Q1

REPORT INFORMATION
  Report Type: 
  Country: None (occurrence: None)
  Receive Date: 20090127
  Receipt Date: 20090121
  Transmission Date: 20090719
  Serious: Yes (Life-Threatening)
  Sender: FDA-Public Use
  Company Number: US-BRISTOL-MYERS SQUIBB COMPANY-14479299

PATIENT
  Age: 17 Year
  Sex: Female

DRUGS (4)
  1. REYATAZ [Suspect]
     Indication: HIV INFECTION
  2. RITONAVIR [Suspect]
     Indication: HIV INFECTION
  3. TRUVADA [Suspect]
     Indication: HIV INFECTION
  4. RALTEGRAVIR [Suspect]
     Indication: HIV INFECTION
     Dosage: RALTEGRAVIR 400 MG BID WITH THE REYATAZ 300 MG.

REACTIONS (1)
  - HEPATIC FAILURE [None]
